FAERS Safety Report 6737280-3 (Version None)
Quarter: 2010Q2

REPORT INFORMATION
  Report Type: 
  Country: None (occurrence: None)
  Receive Date: 20100524
  Receipt Date: 20100514
  Transmission Date: 20101027
  Serious: Yes (Hospitalization)
  Sender: FDA-Public Use
  Company Number: US-BIOGENIDEC-2010BI016013

PATIENT
  Age: 29 Year
  Sex: Female
  Weight: 59 kg

DRUGS (2)
  1. AVONEX [Suspect]
     Indication: MULTIPLE SCLEROSIS
     Route: 030
     Dates: start: 20000510, end: 20030801
  2. AVONEX [Suspect]
     Route: 030
     Dates: start: 20030801, end: 20100514

REACTIONS (8)
  - ABDOMINAL PAIN UPPER [None]
  - ANXIETY [None]
  - CYSTITIS [None]
  - FUNGAL INFECTION [None]
  - GAIT DISTURBANCE [None]
  - GENERAL SYMPTOM [None]
  - HYPOAESTHESIA [None]
  - VOMITING [None]
